FAERS Safety Report 15376714 (Version 1)
Quarter: 2018Q3

REPORT INFORMATION
  Report Type: Spontaneous
  Country: CA (occurrence: CA)
  Receive Date: 20180913
  Receipt Date: 20180913
  Transmission Date: 20181010
  Serious: Yes (Other)
  Sender: FDA-Public Use
  Company Number: CA-CELLTRION INC.-2018CA022223

PATIENT

DRUGS (14)
  1. INFLECTRA [Suspect]
     Active Substance: INFLIXIMAB-DYYB
     Indication: CROHN^S DISEASE
     Dosage: 500 MG, CYCLIC (Q 0, 2, 6 WEEKS, THEN EVERY 8 WEEKS)
     Route: 042
     Dates: start: 20180731
  2. PANTOPRAZOLE SODIUM. [Concomitant]
     Active Substance: PANTOPRAZOLE SODIUM
  3. JAMP CALCIUM [Concomitant]
  4. METOPROLOL L [Concomitant]
  5. JAMIESON E [Concomitant]
  6. HYDROMORPH CONTIN [Concomitant]
     Active Substance: HYDROMORPHONE
  7. ARANESP [Concomitant]
     Active Substance: DARBEPOETIN ALFA
  8. TARO?WARFARIN [Concomitant]
     Active Substance: WARFARIN
  9. AZATHIOPRINE TEVA [Concomitant]
     Active Substance: AZATHIOPRINE
  10. ULTIBRO BREEZHALER [Concomitant]
     Active Substance: GLYCOPYRRONIUM\INDACATEROL
  11. LASIX SPECIAL [Concomitant]
  12. INFLECTRA [Suspect]
     Active Substance: INFLIXIMAB-DYYB
     Dosage: 500 MG, CYCLIC (Q 0, 2, 6 WEEKS, THEN EVERY 8 WEEKS)
     Route: 042
     Dates: start: 20180808
  13. JAMP FOLIC ACID [Concomitant]
  14. PREDNISONE TEVA [Concomitant]
     Active Substance: PREDNISONE

REACTIONS (4)
  - Malaise [Unknown]
  - Intestinal obstruction [Unknown]
  - Abdominal pain [Unknown]
  - Chronic kidney disease [Unknown]
